FAERS Safety Report 15531858 (Version 2)
Quarter: 2018Q4

REPORT INFORMATION
  Report Type: Report from Study
  Country: US (occurrence: US)
  Receive Date: 20181019
  Receipt Date: 20181019
  Transmission Date: 20190205
  Serious: Yes (Other)
  Sender: FDA-Public Use
  Company Number: US-AMGEN-USASL2018124156

PATIENT
  Age: 72 Year
  Sex: Female
  Weight: 77.98 kg

DRUGS (1)
  1. REPATHA [Suspect]
     Active Substance: EVOLOCUMAB
     Indication: HYPERCHOLESTEROLAEMIA
     Dosage: 140 MG (IN1ML), Q2WK
     Route: 058
     Dates: start: 20180830, end: 20180830

REACTIONS (3)
  - Therapeutic response unexpected [Recovered/Resolved]
  - Lymphadenopathy [Recovered/Resolved]
  - Abdominal pain upper [Recovered/Resolved]

NARRATIVE: CASE EVENT DATE: 20180830
